FAERS Safety Report 14432858 (Version 2)
Quarter: 2018Q1

REPORT INFORMATION
  Report Type: Spontaneous
  Country: DE (occurrence: DE)
  Receive Date: 20180124
  Receipt Date: 20180220
  Transmission Date: 20180509
  Serious: Yes (Other)
  Sender: FDA-Public Use
  Company Number: PHHY2018DE009470

PATIENT
  Age: 8 Day
  Sex: Male

DRUGS (2)
  1. ACICLOVIR 1A PHARMA [Suspect]
     Active Substance: ACYCLOVIR
     Indication: FOETAL EXPOSURE DURING PREGNANCY
     Dosage: MATERNAL DOSE: 4 TO 5 DF QD
     Route: 064
     Dates: start: 20171010
  2. ACICLOVIR 1A PHARMA [Suspect]
     Active Substance: ACYCLOVIR
     Dosage: MATERNAL DOSE: 4 TO 5 DF QD
     Route: 064
     Dates: start: 20171017

REACTIONS (7)
  - Food intolerance [Unknown]
  - Mucosal haemorrhage [Not Recovered/Not Resolved]
  - Intestinal haemorrhage [Not Recovered/Not Resolved]
  - Faecal calprotectin increased [Not Recovered/Not Resolved]
  - Crohn^s disease [Not Recovered/Not Resolved]
  - Diarrhoea [Not Recovered/Not Resolved]
  - Inflammatory marker increased [Not Recovered/Not Resolved]

NARRATIVE: CASE EVENT DATE: 20171107
